FAERS Safety Report 5248491-0 (Version None)
Quarter: 2007Q1

REPORT INFORMATION
  Report Type: 
  Country: None (occurrence: None)
  Receive Date: 20070227
  Receipt Date: 20070215
  Transmission Date: 20070707
  Serious: Yes (Other)
  Sender: FDA-Public Use
  Company Number: AU-PFIZER INC-2006152552

PATIENT
  Age: 18 Year
  Sex: Male

DRUGS (3)
  1. DILANTIN [Suspect]
     Route: 048
     Dates: start: 20061113, end: 20061220
  2. PANADOL [Concomitant]
  3. TELFAST [Concomitant]

REACTIONS (8)
  - AGITATION [None]
  - BALANCE DISORDER [None]
  - CONVULSION [None]
  - HEADACHE [None]
  - PARAESTHESIA [None]
  - PHOTOSENSITIVITY REACTION [None]
  - PRURITUS [None]
  - RASH MORBILLIFORM [None]
